FAERS Safety Report 8007268-3 (Version None)
Quarter: 2011Q4

REPORT INFORMATION
  Report Type: 
  Country: None (occurrence: None)
  Receive Date: 20111222
  Receipt Date: 20111222
  Transmission Date: 20120403
  Serious: Yes (Life-Threatening)
  Sender: FDA-Public Use
  Company Number: None

PATIENT
  Age: 80 Year
  Sex: Male
  Weight: 105.7 kg

DRUGS (2)
  1. WARFARIN SODIUM [Suspect]
     Indication: DEEP VEIN THROMBOSIS
     Dosage: 2 MG UD PO
     Route: 048
     Dates: start: 20110311, end: 20111202
  2. WARFARIN SODIUM [Suspect]
     Indication: ATRIAL FIBRILLATION
     Dosage: 2 MG UD PO
     Route: 048
     Dates: start: 20110311, end: 20111202

REACTIONS (12)
  - LACERATION [None]
  - BLOOD GLUCOSE INCREASED [None]
  - HEAD INJURY [None]
  - WOUND [None]
  - HAEMORRHAGE [None]
  - JOINT INJURY [None]
  - FALL [None]
  - PAIN [None]
  - CONTUSION [None]
  - EAR INJURY [None]
  - LIMB INJURY [None]
  - HAEMATOMA [None]
